FAERS Safety Report 23463369 (Version 1)
Quarter: 2024Q1

REPORT INFORMATION
  Report Type: Spontaneous
  Country: US (occurrence: US)
  Receive Date: 20240131
  Receipt Date: 20240131
  Transmission Date: 20240409
  Serious: No
  Sender: FDA-Public Use
  Company Number: US-PFIZER INC-PV202400013250

PATIENT
  Age: 48 Year
  Sex: Female

DRUGS (18)
  1. IBRANCE [Suspect]
     Active Substance: PALBOCICLIB
     Indication: Breast cancer female
     Dosage: 125 MG, CYCLIC (TAKE 1 TABLET BY MOUTH DAILY. TAKE ON DAYS 1-21 OF A 28-DAY CYCLE. TAKE WITH OR  WIT
     Route: 048
     Dates: start: 20240126
  2. ANASTROZOLE [Concomitant]
     Active Substance: ANASTROZOLE
  3. CYCLOBENZAPRINE [Concomitant]
     Active Substance: CYCLOBENZAPRINE
  4. DEXAMETHASONE [Concomitant]
     Active Substance: DEXAMETHASONE
  5. ENOXAPARIN [Concomitant]
     Active Substance: ENOXAPARIN
     Dosage: 40/0.4 ML
  6. EPIPEN [Concomitant]
     Active Substance: EPINEPHRINE
  7. GABAPENTIN [Concomitant]
     Active Substance: GABAPENTIN
  8. IBUPROFEN [Concomitant]
     Active Substance: IBUPROFEN
  9. LASIX [Concomitant]
     Active Substance: FUROSEMIDE
  10. LIDOCAINE [Concomitant]
     Active Substance: LIDOCAINE
     Dosage: PAD 5%
  11. LOPERAMIDE HYDROCHLORIDE [Concomitant]
     Active Substance: LOPERAMIDE HYDROCHLORIDE
  12. MS CONTIN [Concomitant]
     Active Substance: MORPHINE SULFATE
     Dosage: ER
  13. ONDANSETRON [Concomitant]
     Active Substance: ONDANSETRON
  14. OXYCODONE [Concomitant]
     Active Substance: OXYCODONE\OXYCODONE HYDROCHLORIDE
  15. PANTOPRAZOLE [Concomitant]
     Active Substance: PANTOPRAZOLE
  16. SENOKOT-S [Concomitant]
     Active Substance: DOCUSATE SODIUM\SENNOSIDES
  17. TRIAMCINOLONE [Concomitant]
     Active Substance: TRIAMCINOLONE
     Dosage: AER SPRAY
  18. VENLAFAXINE HYDROCHLORIDE [Concomitant]
     Active Substance: VENLAFAXINE HYDROCHLORIDE
     Dosage: ER

REACTIONS (3)
  - Peripheral swelling [Unknown]
  - Vaginal haemorrhage [Unknown]
  - Diarrhoea [Unknown]
